FAERS Safety Report 10222585 (Version 1)
Quarter: 2014Q2

REPORT INFORMATION
  Report Type: Spontaneous
  Country: US (occurrence: US)
  Receive Date: 20140606
  Receipt Date: 20140606
  Transmission Date: 20141212
  Serious: No
  Sender: FDA-Public Use
  Company Number: US-MYLANLABS-2013S1016861

PATIENT
  Sex: Male

DRUGS (2)
  1. ROPINIROLE HYDROCHLORIDE TABLETS [Suspect]
     Indication: PARKINSON^S DISEASE
     Dates: start: 201307, end: 201307
  2. CARBIDOPA LEVODOPA [Concomitant]
     Route: 048

REACTIONS (3)
  - Drug effect decreased [Not Recovered/Not Resolved]
  - Restless legs syndrome [Not Recovered/Not Resolved]
  - Dysstasia [Not Recovered/Not Resolved]
